FAERS Safety Report 4263616-1 (Version None)
Quarter: 2004Q1

REPORT INFORMATION
  Report Type: 
  Country: None (occurrence: None)
  Receive Date: 20040102
  Receipt Date: 20031222
  Transmission Date: 20041129
  Serious: Yes (Other)
  Sender: FDA-Public Use
  Company Number: S03-USA-05298-02

PATIENT
  Age: 91 Year
  Sex: Female
  Weight: 45.1329 kg

DRUGS (6)
  1. LEXAPRO [Suspect]
     Indication: DEPRESSION
     Dosage: 10 MG QD PO
     Route: 048
     Dates: start: 20031112, end: 20031128
  2. MEGACE(MEGRESTOL ACETATE) [Concomitant]
  3. LOPRESSOR [Concomitant]
  4. NITROTAB(GLYCERYL TRINITRATE) [Concomitant]
  5. NORVASC [Concomitant]
  6. PLAVIX [Concomitant]

REACTIONS (1)
  - GRAND MAL CONVULSION [None]
